FAERS Safety Report 9449566 (Version 3)
Quarter: 2014Q1

REPORT INFORMATION
  Report Type: Spontaneous
  Country: NL (occurrence: NL)
  Receive Date: 20130809
  Receipt Date: 20140117
  Transmission Date: 20141002
  Serious: Yes (Other)
  Sender: FDA-Public Use
  Company Number: NL-AMGEN-NLDSP2013055602

PATIENT
  Age: 72 Year
  Sex: Male

DRUGS (8)
  1. XGEVA [Suspect]
     Indication: PROSTATE CANCER
     Dosage: 120 MG, Q4WK
     Route: 058
     Dates: start: 20120928, end: 20130717
  2. XGEVA [Suspect]
     Indication: METASTASES TO BONE
     Dosage: 120 MG, Q4WK
     Route: 058
  3. XGEVA [Suspect]
     Dosage: 120 MG, Q4WK
     Route: 058
  4. CALCICHEW [Concomitant]
     Dosage: 50, QD
     Route: 048
  5. ZOLADEX                            /00732101/ [Concomitant]
     Dosage: UNK
     Route: 058
     Dates: start: 2005
  6. LOSANOX [Concomitant]
     Dosage: 100 UNK, QD
     Route: 048
  7. PREDNISOLON                        /00016201/ [Concomitant]
     Indication: PROSTATE CANCER
     Dosage: 5, BID
     Route: 048
  8. DOCETAXEL [Concomitant]
     Dosage: UNK
     Dates: start: 20120920, end: 20130914

REACTIONS (3)
  - Osteomyelitis [Recovered/Resolved]
  - Osteonecrosis of jaw [Recovered/Resolved]
  - Pulpitis dental [Unknown]
